FAERS Safety Report 20448049 (Version 2)
Quarter: 2022Q4

REPORT INFORMATION
  Report Type: Spontaneous
  Country: JP (occurrence: JP)
  Receive Date: 20220209
  Receipt Date: 20221130
  Transmission Date: 20230112
  Serious: Yes (Hospitalization)
  Sender: FDA-Public Use
  Company Number: JP-ASTELLAS-2022JP002217

PATIENT
  Sex: Female

DRUGS (1)
  1. PADCEV [Suspect]
     Active Substance: ENFORTUMAB VEDOTIN-EJFV
     Indication: Transitional cell carcinoma
     Dosage: 1.25 MG/KG, ONCE WEEKLY ADMINISTRATION FOR THREE CONSECUTIVE WEEKS AND INTERRUPTION FOR THE 4TH WEEK
     Route: 041
     Dates: start: 20220127

REACTIONS (2)
  - Fall [Unknown]
  - Dizziness [Unknown]
